FAERS Safety Report 22319415 (Version 1)
Quarter: 2023Q2

REPORT INFORMATION
  Report Type: Spontaneous
  Country: FR (occurrence: FR)
  Receive Date: 20230515
  Receipt Date: 20230515
  Transmission Date: 20230721
  Serious: Yes (Other)
  Sender: FDA-Public Use
  Company Number: None

PATIENT
  Age: 45 Year
  Sex: Male
  Weight: 91 kg

DRUGS (6)
  1. EZETIMIBE [Suspect]
     Active Substance: EZETIMIBE
     Indication: Vascular disorder prophylaxis
     Dosage: 10 MILLIGRAM, QD
     Route: 048
     Dates: start: 202112
  2. ASPIRIN DL-LYSINE [Suspect]
     Active Substance: ASPIRIN DL-LYSINE
     Indication: Myocardial ischaemia
     Dosage: 100 MILLIGRAM, QD; DOSAGE FORM: POWDER FOR ORAL SOLUTION IN SINGLE-DOSE SACHET
     Route: 048
     Dates: start: 202112
  3. TICAGRELOR [Suspect]
     Active Substance: TICAGRELOR
     Indication: Myocardial ischaemia
     Dosage: 90 MILLIGRAM, QD
     Route: 048
     Dates: start: 202112
  4. RAMIPRIL [Suspect]
     Active Substance: RAMIPRIL
     Indication: Hypertension
     Dosage: 5 MILLIGRAM, QD
     Route: 048
     Dates: start: 202112
  5. ATORVASTATIN [Suspect]
     Active Substance: ATORVASTATIN
     Indication: Vascular disorder prophylaxis
     Dosage: 80 MILLIGRAM
     Route: 048
     Dates: start: 202112
  6. BISOPROLOL [Suspect]
     Active Substance: BISOPROLOL
     Indication: Hypertension
     Dosage: 5 MILLIGRAM, QD; DOSAGE FORM: SCORED FILM COATED TABLET
     Route: 048
     Dates: start: 202112

REACTIONS (1)
  - Gynaecomastia [Not Recovered/Not Resolved]

NARRATIVE: CASE EVENT DATE: 20211201
